FAERS Safety Report 21843435 (Version 1)
Quarter: 2023Q1

REPORT INFORMATION
  Report Type: Spontaneous
  Country: US (occurrence: US)
  Receive Date: 20230110
  Receipt Date: 20230110
  Transmission Date: 20230418
  Serious: Yes (Life-Threatening, Hospitalization, Other)
  Sender: FDA-Public Use
  Company Number: US-JUBILANT CADISTA PHARMACEUTICALS-2023JUB00005

PATIENT
  Age: 7 Decade
  Sex: Male

DRUGS (8)
  1. CARBAMAZEPINE [Suspect]
     Active Substance: CARBAMAZEPINE
     Dosage: 200 MG, EVERY 12 HOUR
  2. LEVETIRACETAM [Suspect]
     Active Substance: LEVETIRACETAM
     Dosage: 1000 MG, EVERY 12 HOUR
  3. BACLOFEN [Suspect]
     Active Substance: BACLOFEN
     Dosage: 5 MG, AS NECESSARY, THREE TIMES PER DAY
  4. CARVEDILOL [Suspect]
     Active Substance: CARVEDILOL
     Dosage: 3.125 MG, EVERY 12 HOUR, OVERDOSE
  5. LITHIUM [Suspect]
     Active Substance: LITHIUM
     Dosage: 600 MG, EVERY 12 HOUR
  6. MIRTAZAPINE [Concomitant]
     Active Substance: MIRTAZAPINE
     Dosage: 30 MG, EVERY 1 DAY AT NIGHT
  7. CLONAZEPAM [Concomitant]
     Active Substance: CLONAZEPAM
     Dosage: 0.25 MG, EVERY 12 HOUR
  8. ATORVASTATIN [Concomitant]
     Active Substance: ATORVASTATIN
     Dosage: 80 MG, EVERY 1 DAY

REACTIONS (8)
  - Hypotension [Recovering/Resolving]
  - Nervous system disorder [Recovering/Resolving]
  - Overdose [Recovered/Resolved]
  - Toxicity to various agents [Recovering/Resolving]
  - Fall [Unknown]
  - Conduction disorder [Recovering/Resolving]
  - Sinus node dysfunction [Recovering/Resolving]
  - Acute kidney injury [Recovering/Resolving]
